FAERS Safety Report 24712527 (Version 2)
Quarter: 2025Q1

REPORT INFORMATION
  Report Type: Spontaneous
  Country: US (occurrence: US)
  Receive Date: 20241209
  Receipt Date: 20250331
  Transmission Date: 20250409
  Serious: No
  Sender: PFIZER
  Company Number: US-PFIZER INC-202400320292

PATIENT
  Age: 44 Year
  Sex: Female

DRUGS (1)
  1. LITFULO [Suspect]
     Active Substance: RITLECITINIB TOSYLATE
     Indication: Alopecia areata
     Dosage: TAKE ONE LITFULO 50MG CAPSULE BY MOUTH DAILY
     Route: 048

REACTIONS (1)
  - Therapeutic product effect incomplete [Unknown]
